FAERS Safety Report 20784711 (Version 1)
Quarter: 2022Q2

REPORT INFORMATION
  Report Type: Spontaneous
  Country: FR (occurrence: FR)
  Receive Date: 20220504
  Receipt Date: 20220504
  Transmission Date: 20220721
  Serious: Yes (Other)
  Sender: FDA-Public Use
  Company Number: None

PATIENT
  Age: 56 Year
  Sex: Male

DRUGS (4)
  1. DEXAMETHASONE [Suspect]
     Active Substance: DEXAMETHASONE
     Indication: COVID-19 pneumonia
     Dosage: 6MG/J (6MG/D)
     Route: 042
     Dates: start: 20211216, end: 20211227
  2. TRACRIUM [Suspect]
     Active Substance: ATRACURIUM BESYLATE
     Indication: Sedation
     Dosage: 100MG/H PENDANT 5 H (100MG/H FOR 5H)
     Route: 042
     Dates: start: 20211217, end: 20211230
  3. PIPERACILLIN SODIUM\TAZOBACTAM SODIUM [Suspect]
     Active Substance: PIPERACILLIN SODIUM\TAZOBACTAM SODIUM
     Indication: Lung disorder
     Dosage: 4G*4X/J (4G*4X/D)
     Route: 042
     Dates: start: 20211221, end: 20211227
  4. PIPERACILLIN SODIUM [Suspect]
     Active Substance: PIPERACILLIN SODIUM
     Indication: Pseudomonal bacteraemia
     Dosage: 4G*4X/J (4G*4X/D)
     Route: 042
     Dates: start: 20220104, end: 20220110

REACTIONS (1)
  - Drug reaction with eosinophilia and systemic symptoms [Recovering/Resolving]

NARRATIVE: CASE EVENT DATE: 20211229
